FAERS Safety Report 7318981-5 (Version None)
Quarter: 2011Q1

REPORT INFORMATION
  Report Type: 
  Country: None (occurrence: None)
  Receive Date: 20110218
  Receipt Date: 20110218
  Transmission Date: 20110831
  Serious: Yes (Hospitalization)
  Sender: FDA-Public Use
  Company Number: None

PATIENT
  Age: 48 Year
  Sex: Female

DRUGS (1)
  1. HUMIRA [Suspect]
     Dosage: 80 MG EVERY OTHER WEEK SUBCUTANEOUS
     Route: 058
     Dates: start: 20110121, end: 20110121

REACTIONS (2)
  - PSORIASIS [None]
  - HYPERSENSITIVITY [None]
